FAERS Safety Report 8077338-2 (Version None)
Quarter: 2012Q1

REPORT INFORMATION
  Report Type: 
  Country: None (occurrence: None)
  Receive Date: 20120127
  Receipt Date: 20120123
  Transmission Date: 20120608
  Serious: No
  Sender: FDA-Public Use
  Company Number: US-PFIZER INC-2012018569

PATIENT
  Sex: Female
  Weight: 104 kg

DRUGS (4)
  1. LYRICA [Suspect]
     Indication: FIBROMYALGIA
     Dosage: 300 MG, DAILY
  2. DILANTIN [Suspect]
     Indication: CEREBRAL SARCOIDOSIS
     Dosage: 200 MG, 2X/DAY
  3. KLONOPIN [Concomitant]
     Dosage: 6 MG, DAILY
  4. PREDNISONE [Concomitant]
     Dosage: 10 MG, DAILY

REACTIONS (1)
  - RESTLESS LEGS SYNDROME [None]
